FAERS Safety Report 12652139 (Version 2)
Quarter: 2016Q4

REPORT INFORMATION
  Report Type: Spontaneous
  Country: US (occurrence: US)
  Receive Date: 20160815
  Receipt Date: 20161011
  Transmission Date: 20170207
  Serious: Yes (Hospitalization, Other)
  Sender: FDA-Public Use
  Company Number: US-GLAXOSMITHKLINE-US2016116231

PATIENT
  Age: 53 Year
  Sex: Female

DRUGS (8)
  1. ROBAXIN [Concomitant]
     Active Substance: METHOCARBAMOL
  2. ADVAIR DISKUS [Suspect]
     Active Substance: FLUTICASONE PROPIONATE\SALMETEROL XINAFOATE
     Indication: CHRONIC OBSTRUCTIVE PULMONARY DISEASE
     Dosage: UNK, BID (250/50 MCG)
     Route: 055
     Dates: start: 2006
  3. ADVAIR DISKUS [Suspect]
     Active Substance: FLUTICASONE PROPIONATE\SALMETEROL XINAFOATE
     Indication: ASTHMA
  4. CYMBALTA [Concomitant]
     Active Substance: DULOXETINE HYDROCHLORIDE
  5. SIMVASTATIN. [Concomitant]
     Active Substance: SIMVASTATIN
  6. DEXILANT [Concomitant]
     Active Substance: DEXLANSOPRAZOLE
  7. HYZAAR [Concomitant]
     Active Substance: HYDROCHLOROTHIAZIDE\LOSARTAN POTASSIUM
  8. LYRICA [Concomitant]
     Active Substance: PREGABALIN

REACTIONS (12)
  - Spinal fusion surgery [Not Recovered/Not Resolved]
  - Procedural pain [Unknown]
  - Knee operation [Recovered/Resolved]
  - Muscular weakness [Unknown]
  - Multiple fractures [Recovered/Resolved]
  - Joint injury [Unknown]
  - Meniscus injury [Unknown]
  - Rotator cuff repair [Recovered/Resolved]
  - Fall [Recovered/Resolved]
  - Hernia [Recovered/Resolved]
  - Intervertebral disc protrusion [Unknown]
  - Physiotherapy [Unknown]

NARRATIVE: CASE EVENT DATE: 200710
